FAERS Safety Report 4853660-5 (Version None)
Quarter: 2005Q4

REPORT INFORMATION
  Report Type: 
  Country: None (occurrence: None)
  Receive Date: 20051212
  Receipt Date: 20051201
  Transmission Date: 20060501
  Serious: Yes (Death, Hospitalization)
  Sender: FDA-Public Use
  Company Number: GXKR2005NO02082

PATIENT
  Age: 75 Year
  Sex: Female

DRUGS (5)
  1. LISINOPRIL [Suspect]
     Dosage: 5 MG, QD, ORAL
     Route: 048
  2. GLUCOPHAGE [Suspect]
     Dosage: 500 MG, QID, ORAL
     Route: 048
  3. DICLOFENAC SODIUM [Suspect]
     Dosage: ORAL
     Route: 048
  4. XALATAN [Concomitant]
  5. AMARYL [Concomitant]

REACTIONS (4)
  - BLOOD PRESSURE DECREASED [None]
  - BRADYCARDIA [None]
  - METABOLIC ACIDOSIS [None]
  - RENAL FAILURE [None]
